FAERS Safety Report 5075170-5 (Version None)
Quarter: 2006Q3

REPORT INFORMATION
  Report Type: 
  Country: None (occurrence: None)
  Receive Date: 20060804
  Receipt Date: 20060730
  Transmission Date: 20061208
  Serious: Yes (Other)
  Sender: FDA-Public Use
  Company Number: 2006093025

PATIENT
  Sex: 0

DRUGS (1)
  1. LYRICA [Suspect]

REACTIONS (1)
  - HYPONATRAEMIA [None]
